FAERS Safety Report 17176085 (Version 2)
Quarter: 2020Q1

REPORT INFORMATION
  Report Type: Spontaneous
  Country: GB (occurrence: GB)
  Receive Date: 20191219
  Receipt Date: 20200102
  Transmission Date: 20200409
  Serious: Yes (Hospitalization)
  Sender: FDA-Public Use
  Company Number: GB-BIOMARINAP-GB-2019-127410

PATIENT
  Sex: Male

DRUGS (6)
  1. SOLU-CORTEF [Concomitant]
     Active Substance: HYDROCORTISONE SODIUM SUCCINATE
     Indication: PRODUCT USED FOR UNKNOWN INDICATION
     Dosage: 100 MILLIGRAM
  2. VIMIZIM [Suspect]
     Active Substance: ELOSULFASE ALFA
     Indication: MUCOPOLYSACCHARIDOSIS IV
     Dosage: 20 MILLIGRAM, QOW
     Route: 042
  3. CRYOGESIC [Concomitant]
     Indication: PRODUCT USED FOR UNKNOWN INDICATION
  4. RANITIDINE. [Concomitant]
     Active Substance: RANITIDINE
     Indication: PRODUCT USED FOR UNKNOWN INDICATION
     Dosage: 10 MILLIGRAM
  5. VIMIZIM [Suspect]
     Active Substance: ELOSULFASE ALFA
     Dosage: 25 MILLIGRAM,QOW
     Route: 042
  6. CHLORPHENAMINE [Concomitant]
     Active Substance: CHLORPHENIRAMINE MALEATE
     Indication: PRODUCT USED FOR UNKNOWN INDICATION
     Dosage: 2.5 MILLIGRAM

REACTIONS (4)
  - Product dose omission [Unknown]
  - Pyrexia [Recovered/Resolved]
  - Heart rate increased [Recovered/Resolved]
  - Oxygen saturation decreased [Recovered/Resolved]
